FAERS Safety Report 10085398 (Version 1)
Quarter: 2014Q2

REPORT INFORMATION
  Report Type: Spontaneous
  Country: GB (occurrence: GB)
  Receive Date: 20140418
  Receipt Date: 20140418
  Transmission Date: 20141212
  Serious: Yes (Other)
  Sender: FDA-Public Use
  Company Number: PHHY2014GB043677

PATIENT
  Sex: 0

DRUGS (2)
  1. METFORMIN [Suspect]
     Route: 064
  2. INSULIN [Suspect]
     Route: 064

REACTIONS (4)
  - Foetal macrosomia [Unknown]
  - Premature baby [Unknown]
  - Foetal distress syndrome [Unknown]
  - Foetal exposure during pregnancy [Unknown]
